FAERS Safety Report 14390481 (Version 1)
Quarter: 2018Q1

REPORT INFORMATION
  Report Type: Spontaneous
  Country: IN (occurrence: IN)
  Receive Date: 20180116
  Receipt Date: 20180116
  Transmission Date: 20180509
  Serious: No
  Sender: FDA-Public Use
  Company Number: IN-LUPIN PHARMACEUTICALS INC.-2017-05535

PATIENT
  Sex: Female

DRUGS (2)
  1. DAYO-OD FIL.C.TAB ER 500 MG [Suspect]
     Active Substance: DIVALPROEX SODIUM
     Indication: INSOMNIA
     Dosage: UNK
     Route: 048
  2. DAYO-OD FIL.C.TAB ER 250 MG [Suspect]
     Active Substance: DIVALPROEX SODIUM
     Indication: INSOMNIA
     Dosage: UNK
     Route: 048

REACTIONS (4)
  - Off label use [Unknown]
  - Mouth ulceration [Unknown]
  - Decreased activity [Unknown]
  - Somnolence [Unknown]
